FAERS Safety Report 6993623-7 (Version None)
Quarter: 2010Q3

REPORT INFORMATION
  Report Type: 
  Country: None (occurrence: None)
  Receive Date: 20100917
  Receipt Date: 20070919
  Transmission Date: 20110219
  Serious: Yes (Other)
  Sender: FDA-Public Use
  Company Number: US-ASTRAZENECA-2007UW16504

PATIENT
  Age: 18410 Day
  Sex: Male
  Weight: 131.5 kg

DRUGS (8)
  1. SEROQUEL [Suspect]
     Route: 048
  2. ABILIFY [Concomitant]
  3. HALDOL [Concomitant]
  4. NAVANE [Concomitant]
  5. STELAZINE [Concomitant]
  6. THORAZINE [Concomitant]
  7. LOPRESSOR [Concomitant]
     Route: 048
     Dates: start: 20070326
  8. NEURONTIN [Concomitant]
     Route: 048
     Dates: start: 20040917

REACTIONS (3)
  - DIABETES MELLITUS [None]
  - DIABETIC KETOACIDOSIS [None]
  - TYPE 1 DIABETES MELLITUS [None]
